FAERS Safety Report 9323484 (Version 1)
Quarter: 2013Q2

REPORT INFORMATION
  Report Type: Spontaneous
  Country: US (occurrence: US)
  Receive Date: 20130603
  Receipt Date: 20130603
  Transmission Date: 20140414
  Serious: No
  Sender: FDA-Public Use
  Company Number: US-PFIZER INC-2013167346

PATIENT
  Age: 34 Year
  Sex: Female
  Weight: 81.6 kg

DRUGS (4)
  1. EFFEXOR XR [Suspect]
     Indication: SEASONAL AFFECTIVE DISORDER
     Dosage: 37.5MG DAILY
     Dates: start: 2011
  2. EFFEXOR XR [Suspect]
     Indication: DEPRESSION
  3. ORTHO TRI-CYCLEN [Concomitant]
     Indication: CONTRACEPTION
     Dosage: UNK,DAILY
  4. ATENOLOL [Concomitant]
     Indication: HYPERTENSION
     Dosage: 25MG, DAILY

REACTIONS (2)
  - Dizziness [Unknown]
  - Feeling abnormal [Unknown]
